FAERS Safety Report 9680954 (Version 1)
Quarter: 2013Q4

REPORT INFORMATION
  Report Type: Spontaneous
  Country: CA (occurrence: CA)
  Receive Date: 20131111
  Receipt Date: 20131111
  Transmission Date: 20140711
  Serious: Yes (Other)
  Sender: FDA-Public Use
  Company Number: CA-ROCHE-1299645

PATIENT
  Age: 39 Year
  Sex: Male

DRUGS (4)
  1. TRETINOIN [Suspect]
     Indication: PRODUCT USED FOR UNKNOWN INDICATION
     Route: 065
  2. CYTARABINE [Concomitant]
     Route: 065
  3. DAUNORUBICIN [Concomitant]
     Route: 065
  4. DEXAMETHASONE [Concomitant]

REACTIONS (2)
  - Acute promyelocytic leukaemia differentiation syndrome [Recovered/Resolved]
  - Chorioretinopathy [Recovered/Resolved]
